FAERS Safety Report 7591416-3 (Version None)
Quarter: 2011Q3

REPORT INFORMATION
  Report Type: 
  Country: None (occurrence: None)
  Receive Date: 20110706
  Receipt Date: 20110630
  Transmission Date: 20111222
  Serious: Yes (Hospitalization, Other)
  Sender: FDA-Public Use
  Company Number: US-AMGEN-USASP2011033568

PATIENT
  Age: 82 Year
  Sex: Female

DRUGS (3)
  1. NEULASTA [Suspect]
     Indication: CHEMOTHERAPY
  2. ANTINEOPLASTIC AGENTS [Concomitant]
  3. NEUPOGEN [Suspect]
     Indication: CHEMOTHERAPY

REACTIONS (8)
  - ABDOMINAL PAIN UPPER [None]
  - ESCHERICHIA URINARY TRACT INFECTION [None]
  - HYPONATRAEMIA [None]
  - ASTHENIA [None]
  - NEUTROPHIL COUNT DECREASED [None]
  - LETHARGY [None]
  - DEHYDRATION [None]
  - INCOHERENT [None]
